FAERS Safety Report 19159233 (Version 1)
Quarter: 2021Q2

REPORT INFORMATION
  Report Type: Spontaneous
  Country: BF (occurrence: BF)
  Receive Date: 20210420
  Receipt Date: 20210420
  Transmission Date: 20210717
  Serious: Yes (Hospitalization, Other)
  Sender: FDA-Public Use
  Company Number: BF-CASPER PHARMA LLC-2021CAS000202

PATIENT
  Age: 9 Year
  Sex: Male

DRUGS (1)
  1. PENICILLIN G BENZATHINE [Suspect]
     Active Substance: PENICILLIN G BENZATHINE
     Indication: DERMATOSIS
     Dosage: UNK
     Route: 030

REACTIONS (3)
  - Product use in unapproved indication [Unknown]
  - Embolia cutis medicamentosa [Recovering/Resolving]
  - Rhabdomyolysis [Recovering/Resolving]
